FAERS Safety Report 9286764 (Version 2)
Quarter: 2013Q2

REPORT INFORMATION
  Report Type: Spontaneous
  Country: UA (occurrence: None)
  Receive Date: 20130509
  Receipt Date: 20130515
  Transmission Date: 20140414
  Serious: No
  Sender: FDA-Public Use
  Company Number: UA-1197795

PATIENT
  Age: 63 Year
  Sex: Male

DRUGS (1)
  1. MAXIDEX [Suspect]
     Indication: POSTOPERATIVE CARE
     Dosage: (0.1 % 6X/DAY OD OPHTHALMIC)
     Route: 047
     Dates: start: 20130411, end: 20130412

REACTIONS (5)
  - Vision blurred [None]
  - Ocular hyperaemia [None]
  - Eye oedema [None]
  - Nausea [None]
  - Eye irritation [None]
